FAERS Safety Report 7598012-2 (Version None)
Quarter: 2011Q3

REPORT INFORMATION
  Report Type: 
  Country: None (occurrence: None)
  Receive Date: 20110708
  Receipt Date: 20110705
  Transmission Date: 20111222
  Serious: Yes (Other)
  Sender: FDA-Public Use
  Company Number: US-ABBOTT-11P-163-0836803-00

PATIENT
  Sex: Male
  Weight: 77.18 kg

DRUGS (6)
  1. PLAVIX [Concomitant]
     Indication: CARDIAC OPERATION
     Dosage: 75 MILLIGRAM DAILY
  2. TOPROL-XL [Concomitant]
     Indication: BLOOD PRESSURE
     Dosage: 25 MILLIGRAM DAILY
  3. HUMIRA [Suspect]
     Indication: PSORIASIS
     Dates: start: 20110301
  4. CRESTOR [Concomitant]
     Indication: PRODUCT USED FOR UNKNOWN INDICATION
     Dosage: 40 MG DAILY
  5. NIACIN [Concomitant]
     Indication: SUPPLEMENTATION THERAPY
     Dosage: 1500 MG DAILY
  6. ASPIRIN [Concomitant]
     Indication: PROPHYLAXIS
     Dosage: 81 MG DAILY

REACTIONS (3)
  - SQUAMOUS CELL CARCINOMA OF SKIN [None]
  - ACNE [None]
  - INJECTION SITE PAIN [None]
